FAERS Safety Report 6998806-8 (Version None)
Quarter: 2010Q3

REPORT INFORMATION
  Report Type: 
  Country: None (occurrence: None)
  Receive Date: 20100920
  Receipt Date: 20100511
  Transmission Date: 20110219
  Serious: Yes (Other)
  Sender: FDA-Public Use
  Company Number: US-ASTRAZENECA-2010SE03952

PATIENT
  Age: 30 Year
  Sex: Male
  Weight: 97.5 kg

DRUGS (10)
  1. SEROQUEL [Suspect]
     Indication: BIPOLAR DISORDER
     Dosage: 100 MG AND 800 MG
     Route: 048
     Dates: start: 20080110, end: 20090204
  2. SEROQUEL [Suspect]
     Indication: SLEEP DISORDER
     Dosage: 100 MG AND 800 MG
     Route: 048
     Dates: start: 20080110, end: 20090204
  3. SEROQUEL [Suspect]
     Indication: OBSESSIVE-COMPULSIVE DISORDER
     Dosage: 100 MG AND 800 MG
     Route: 048
     Dates: start: 20080110, end: 20090204
  4. SEROQUEL [Suspect]
     Indication: MENTAL DISORDER
     Dosage: 100 MG AND 800 MG
     Route: 048
     Dates: start: 20080110, end: 20090204
  5. GEODON [Concomitant]
  6. ZYPREXA [Concomitant]
     Indication: NERVOUSNESS
     Route: 048
     Dates: start: 20071213, end: 20081213
  7. LITHIUM CARBONATE [Concomitant]
     Indication: AFFECTIVE DISORDER
     Dosage: 150MG-900MG
     Route: 048
     Dates: start: 20070816, end: 20090204
  8. RISPERIDONE [Concomitant]
     Indication: NERVOUSNESS
     Dosage: 2MG-4MG AT NIGHT
     Route: 048
     Dates: start: 20070716, end: 20080719
  9. ARIPIPRAZOLE [Concomitant]
     Indication: MENTAL DISORDER
     Dosage: 20MG-40MG
     Route: 048
     Dates: start: 20080325, end: 20090514
  10. CLONAZEPAM [Concomitant]
     Indication: ANXIETY
     Route: 048

REACTIONS (5)
  - BLOOD TRIGLYCERIDES INCREASED [None]
  - ERECTILE DYSFUNCTION [None]
  - METABOLIC SYNDROME [None]
  - TARDIVE DYSKINESIA [None]
  - TYPE 2 DIABETES MELLITUS [None]
